FAERS Safety Report 21837288 (Version 1)
Quarter: 2023Q1

REPORT INFORMATION
  Report Type: Spontaneous
  Country: US (occurrence: US)
  Receive Date: 20230109
  Receipt Date: 20230109
  Transmission Date: 20230418
  Serious: Yes (Other)
  Sender: FDA-Public Use
  Company Number: US-002147023-NVSC2023US002454

PATIENT
  Age: 3 Year
  Sex: Male

DRUGS (14)
  1. DABRAFENIB [Suspect]
     Active Substance: DABRAFENIB
     Indication: Langerhans^ cell histiocytosis
     Dosage: 30 MG, QD (WITH BREAKFAST, PREPARED VIA  DRUG PREPARATION AND ADMINISTRATION  INSTRUCTIONS PROVIDED,
     Route: 048
     Dates: start: 20220809
  2. DABRAFENIB [Suspect]
     Active Substance: DABRAFENIB
     Dosage: 40 MG, QD (WITH DINNER, PREPARED VIA  DRUG PREPARATION AND ADMINISTRATION  INSTRUCTIONS PROVIDED. MO
     Route: 048
  3. DESMOPRESSIN [Concomitant]
     Active Substance: DESMOPRESSIN
     Indication: Product used for unknown indication
     Dosage: 0.05 MG, TID
     Route: 048
  4. EMLA [Concomitant]
     Active Substance: LIDOCAINE\PRILOCAINE
     Indication: Product used for unknown indication
     Dosage: UNK (APPLY TO PORT SITE 30 MINUTES PRIOR TO ACCESS AS NEEDED)
     Route: 065
  5. MILK OF MAGNESIA [Concomitant]
     Active Substance: MAGNESIUM HYDROXIDE
     Indication: Product used for unknown indication
     Dosage: 7.5 ML, QD
     Route: 048
  6. ZOFRAN [Concomitant]
     Active Substance: ONDANSETRON HYDROCHLORIDE
     Indication: Product used for unknown indication
     Dosage: 2 MG, TID (PRN)
     Route: 048
  7. MINERALS\VITAMINS [Concomitant]
     Active Substance: MINERALS\VITAMINS
     Indication: Product used for unknown indication
     Dosage: 15 ML, QD (ANIMAL PARADE)
     Route: 048
  8. SULFATRIM [Concomitant]
     Active Substance: SULFAMETHOXAZOLE\TRIMETHOPRIM
     Indication: Prophylaxis
     Dosage: 4 ML, BID (SUSPENSION)
     Route: 048
  9. VITAMIN D [Concomitant]
     Active Substance: VITAMIN D NOS
     Indication: Product used for unknown indication
     Dosage: 600 IU, QD (1 DROP) (BOOSTER)
     Route: 065
  10. EPINEPHRINE BITARTRATE\LIDOCAINE HYDROCHLORIDE [Concomitant]
     Active Substance: EPINEPHRINE BITARTRATE\LIDOCAINE HYDROCHLORIDE
     Indication: Product used for unknown indication
     Dosage: UNK
     Route: 065
  11. VINBLASTINE [Concomitant]
     Active Substance: VINBLASTINE
     Indication: Product used for unknown indication
     Dosage: UNK (12 WEEKS)
     Route: 065
  12. PREDNISONE [Concomitant]
     Active Substance: PREDNISONE
     Indication: Product used for unknown indication
     Dosage: UNK (12 WEEKS)
     Route: 065
  13. CYTARABINE [Concomitant]
     Active Substance: CYTARABINE
     Indication: Product used for unknown indication
     Dosage: UNK, QD (FIRST COURSE, 5 DAYS)
     Route: 041
     Dates: start: 20220613
  14. CYTARABINE [Concomitant]
     Active Substance: CYTARABINE
     Dosage: UNK, QD (SECOND COURSE, 5 DAYS)
     Route: 041
     Dates: start: 20220710

REACTIONS (4)
  - Langerhans^ cell histiocytosis [Unknown]
  - Malignant neoplasm progression [Unknown]
  - Metastases to liver [Unknown]
  - Product use in unapproved indication [Unknown]
